FAERS Safety Report 5370005-5 (Version None)
Quarter: 2007Q2

REPORT INFORMATION
  Report Type: 
  Country: None (occurrence: None)
  Receive Date: 20070626
  Receipt Date: 20070619
  Transmission Date: 20071010
  Serious: Yes (Other)
  Sender: FDA-Public Use
  Company Number: PHBS2007DE10312

PATIENT
  Age: 54 Year
  Sex: Female

DRUGS (1)
  1. TERBINAFINE [Suspect]

REACTIONS (3)
  - AGITATION [None]
  - DEPRESSION [None]
  - NIGHT SWEATS [None]
